FAERS Safety Report 7649343-9 (Version None)
Quarter: 2011Q3

REPORT INFORMATION
  Report Type: 
  Country: None (occurrence: None)
  Receive Date: 20110802
  Receipt Date: 20110725
  Transmission Date: 20111222
  Serious: Yes (Hospitalization, Other)
  Sender: FDA-Public Use
  Company Number: PHHY2011US66771

PATIENT
  Age: 73 Year
  Sex: Female

DRUGS (8)
  1. ASPIRIN [Suspect]
     Indication: ATRIAL FIBRILLATION
     Dosage: UNK
  2. CLOPIDOGREL [Suspect]
     Indication: ATRIAL FIBRILLATION
     Dosage: UNK
  3. LISINOPRIL [Concomitant]
     Dosage: UNK
  4. DILTIAZEM [Concomitant]
     Dosage: UNK
  5. METOPROLOL TARTRATE [Concomitant]
     Dosage: UNK
  6. GLYBURIDE [Concomitant]
     Dosage: UNK
  7. WARFARIN [Suspect]
     Indication: ATRIAL FIBRILLATION
     Dosage: UNK
  8. SIMVASTATIN [Concomitant]
     Dosage: UNK

REACTIONS (7)
  - TENDERNESS [None]
  - PAIN [None]
  - TRENDELENBURG'S SYMPTOM [None]
  - PARAESTHESIA [None]
  - MUSCLE HAEMORRHAGE [None]
  - PAIN IN EXTREMITY [None]
  - NEUROPATHY PERIPHERAL [None]
